FAERS Safety Report 8034231-9 (Version None)
Quarter: 2012Q1

REPORT INFORMATION
  Report Type: 
  Country: None (occurrence: None)
  Receive Date: 20120110
  Receipt Date: 20120103
  Transmission Date: 20120608
  Serious: Yes (Hospitalization)
  Sender: FDA-Public Use
  Company Number: US-BAYER-2011-062086

PATIENT
  Age: 37 Year
  Sex: Female
  Weight: 80.272 kg

DRUGS (8)
  1. VITAMIN E [Concomitant]
     Dosage: UNK
     Route: 048
     Dates: start: 20050101
  2. VERAMYST [Concomitant]
     Dosage: UNK
     Route: 045
     Dates: start: 20090821
  3. CALCIUM ACETATE [Concomitant]
     Dosage: UNK
     Route: 048
     Dates: start: 20090821
  4. CLARINEX [LORATADINE,PSEUDOEPHEDRINE SULFATE] [Concomitant]
     Indication: SEASONAL ALLERGY
     Dosage: UNK
     Route: 048
     Dates: start: 20050101, end: 20100101
  5. VITAMIN D [Concomitant]
     Dosage: UNK
     Route: 048
     Dates: start: 20050101
  6. VITAMIN C [Concomitant]
     Dosage: UNK
     Route: 048
     Dates: start: 20050101
  7. YAZ [Suspect]
     Indication: CONTRACEPTION
     Dosage: UNK
     Dates: start: 20080401, end: 20090901
  8. FLAXSEED OIL [Concomitant]
     Dosage: UNK
     Route: 048
     Dates: start: 20050101

REACTIONS (8)
  - PAIN [None]
  - FEAR [None]
  - DEEP VEIN THROMBOSIS [None]
  - INJURY [None]
  - ANXIETY [None]
  - PSYCHOLOGICAL TRAUMA [None]
  - ANHEDONIA [None]
  - PULMONARY EMBOLISM [None]
